FAERS Safety Report 4368550-4 (Version None)
Quarter: 2004Q2

REPORT INFORMATION
  Report Type: 
  Country: None (occurrence: None)
  Receive Date: 20040528
  Receipt Date: 20040524
  Transmission Date: 20050107
  Serious: Yes (Hospitalization, Other)
  Sender: FDA-Public Use
  Company Number: FRWYE776224MAY04

PATIENT
  Age: 51 Year
  Sex: Male

DRUGS (4)
  1. TEMESTA             (LOARAZEPAM ) [Suspect]
     Indication: OBSESSIVE-COMPULSIVE DISORDER
     Dosage: 3 MG 1X PER 1 DAY; ORAL
     Route: 048
     Dates: start: 20030615, end: 20040103
  2. PAROXETINE HCL [Suspect]
     Indication: OBSESSIVE-COMPULSIVE DISORDER
     Dosage: 20 MG 1X PER 1 DAY; ORAL
     Route: 048
     Dates: start: 20030615, end: 20040103
  3. OXAZEPAM [Suspect]
     Indication: OBSESSIVE-COMPULSIVE DISORDER
     Dosage: 50 MG 1X PER 1 DAY; ORAL
     Route: 048
     Dates: start: 20030615, end: 20040103
  4. NAPROXEN SODIUM [Concomitant]

REACTIONS (3)
  - GAMMA-GLUTAMYLTRANSFERASE INCREASED [None]
  - MYALGIA [None]
  - TRANSAMINASES INCREASED [None]
